FAERS Safety Report 11120521 (Version 1)
Quarter: 2015Q2

REPORT INFORMATION
  Report Type: Spontaneous
  Country: GB (occurrence: GB)
  Receive Date: 20150518
  Receipt Date: 20150518
  Transmission Date: 20150821
  Serious: Yes (Life-Threatening, Hospitalization)
  Sender: FDA-Public Use
  Company Number: GB-009507513-1505GBR006637

PATIENT
  Age: 60 Year
  Sex: Female

DRUGS (2)
  1. LEVOTHYROXINE SODIUM. [Concomitant]
     Active Substance: LEVOTHYROXINE SODIUM
     Indication: PRODUCT USED FOR UNKNOWN INDICATION
     Dosage: 75 MG, QD
     Route: 065
  2. OVESTIN 1 MG CREAM [Suspect]
     Active Substance: ESTRIOL
     Indication: ATROPHIC VULVOVAGINITIS
     Dosage: UNK, QD (DAILY FOR 14 DAYS TWICE IN APRIL AND OCTOBER 2013)
     Route: 067
     Dates: start: 201304

REACTIONS (3)
  - Endometriosis [Recovered/Resolved]
  - Hypertension [Unknown]
  - Abdominal pain [Recovering/Resolving]

NARRATIVE: CASE EVENT DATE: 20130831
